FAERS Safety Report 7909334-7 (Version None)
Quarter: 2011Q4

REPORT INFORMATION
  Report Type: 
  Country: None (occurrence: None)
  Receive Date: 20111111
  Receipt Date: 20111103
  Transmission Date: 20120403
  Serious: Yes (Other)
  Sender: FDA-Public Use
  Company Number: US-PURDUE-USA-2011-0077434

PATIENT
  Age: 64 Year
  Sex: Female

DRUGS (3)
  1. LOVENOX [Suspect]
     Indication: PROPHYLAXIS
     Dosage: 30 MG, BID
     Dates: start: 20111001
  2. CELEBREX [Suspect]
     Indication: PAIN
     Dosage: UNK
     Dates: end: 20111001
  3. OXYCODONE HCL [Suspect]
     Indication: PAIN
     Dosage: UNK UNK, UNK
     Dates: end: 20111001

REACTIONS (3)
  - RASH ERYTHEMATOUS [None]
  - RASH PRURITIC [None]
  - KNEE ARTHROPLASTY [None]
